FAERS Safety Report 20421766 (Version 1)
Quarter: 2022Q1

REPORT INFORMATION
  Report Type: Spontaneous
  Country: US (occurrence: None)
  Receive Date: 20220203
  Receipt Date: 20220203
  Transmission Date: 20220424
  Serious: No
  Sender: FDA-Public Use
  Company Number: None

PATIENT
  Age: 56 Year
  Sex: Female

DRUGS (1)
  1. NUCALA [Suspect]
     Active Substance: MEPOLIZUMAB
     Indication: Asthma
     Dosage: OTHER FREQUENCY : UNKNOWN;?
     Route: 058
     Dates: start: 202103

REACTIONS (5)
  - Cough [None]
  - Dyspnoea [None]
  - Nasal congestion [None]
  - Insurance issue [None]
  - Therapy interrupted [None]

NARRATIVE: CASE EVENT DATE: 20220201
